FAERS Safety Report 6010232-7 (Version None)
Quarter: 2008Q4

REPORT INFORMATION
  Report Type: 
  Country: None (occurrence: None)
  Receive Date: 20081218
  Receipt Date: 20080325
  Transmission Date: 20090506
  Serious: No
  Sender: FDA-Public Use
  Company Number: A0706145A

PATIENT
  Sex: Female

DRUGS (2)
  1. FLUTICASONE PROPIONATE [Suspect]
     Indication: SEASONAL ALLERGY
     Route: 045
  2. UNKNOWN [Concomitant]

REACTIONS (3)
  - NASAL CONGESTION [None]
  - PRODUCT QUALITY ISSUE [None]
  - SEASONAL ALLERGY [None]
